FAERS Safety Report 8609050-2 (Version None)
Quarter: 2012Q3

REPORT INFORMATION
  Report Type: 
  Country: None (occurrence: None)
  Receive Date: 20120821
  Receipt Date: 19940224
  Transmission Date: 20120928
  Serious: Yes (Death, Other)
  Sender: FDA-Public Use
  Company Number: US-ROCHE-1099901

PATIENT
  Sex: Male

DRUGS (2)
  1. MAALOX PRODUCT NOS [Concomitant]
  2. ACTIVASE [Suspect]
     Indication: MYOCARDIAL INFARCTION

REACTIONS (5)
  - CHEST PAIN [None]
  - ARRHYTHMIA [None]
  - RHYTHM IDIOVENTRICULAR [None]
  - DEATH [None]
  - DIZZINESS [None]
